FAERS Safety Report 10179991 (Version 2)
Quarter: 2014Q2

REPORT INFORMATION
  Report Type: Spontaneous
  Country: US (occurrence: US)
  Receive Date: 20140519
  Receipt Date: 20140519
  Transmission Date: 20141212
  Serious: No
  Sender: FDA-Public Use
  Company Number: US-BRISTOL-MYERS SQUIBB COMPANY-19730977

PATIENT
  Age: 73 Year
  Sex: Male

DRUGS (7)
  1. BARACLUDE TABS 1.0 MG [Suspect]
  2. TAMSULOSIN [Concomitant]
     Dosage: 1DF: 2CAPS
  3. OXYCODONE [Concomitant]
  4. LORAZEPAM [Concomitant]
  5. AMLODIPINE [Concomitant]
  6. CYMBALTA [Concomitant]
  7. LANSOPRAZOLE [Concomitant]

REACTIONS (1)
  - Circumstance or information capable of leading to medication error [Unknown]
